FAERS Safety Report 11658842 (Version 1)
Quarter: 2015Q4

REPORT INFORMATION
  Report Type: Spontaneous
  Country: US (occurrence: None)
  Receive Date: 20151022
  Receipt Date: 20151022
  Transmission Date: 20160304
  Serious: Yes (Other)
  Sender: FDA-Public Use
  Company Number: CA-ALSI-201500235

PATIENT
  Age: 78 Year
  Sex: Male

DRUGS (1)
  1. OXYGEN USP OXYGEN [Suspect]
     Active Substance: OXYGEN
     Indication: PRODUCT USED FOR UNKNOWN INDICATION
     Dosage: 1 | ONCE A MINUTE RESPIRATORY
     Route: 055
     Dates: start: 20140428

REACTIONS (2)
  - Thermal burn [None]
  - Wrong technique in product usage process [None]

NARRATIVE: CASE EVENT DATE: 2015
